FAERS Safety Report 5292327-9 (Version None)
Quarter: 2007Q2

REPORT INFORMATION
  Report Type: 
  Country: None (occurrence: None)
  Receive Date: 20070410
  Receipt Date: 20070327
  Transmission Date: 20071010
  Serious: No
  Sender: FDA-Public Use
  Company Number: US-ELI_LILLY_AND_COMPANY-US200702004320

PATIENT
  Age: 78 Year
  Sex: Female

DRUGS (5)
  1. FORTEO [Suspect]
     Indication: OSTEOPOROSIS
     Dosage: UNK, UNK
     Dates: start: 20060601
  2. PREDNISONE TAB [Concomitant]
  3. ASPIRIN [Concomitant]
  4. LUTEIN [Concomitant]
  5. ACTONEL [Concomitant]

REACTIONS (1)
  - MACULAR DEGENERATION [None]
